FAERS Safety Report 7283942-1 (Version None)
Quarter: 2011Q1

REPORT INFORMATION
  Report Type: 
  Country: None (occurrence: None)
  Receive Date: 20110131
  Receipt Date: 20101231
  Transmission Date: 20110831
  Serious: Yes (Death)
  Sender: FDA-Public Use
  Company Number: AUR-APL-2011-00148

PATIENT
  Age: 27 Year
  Sex: Female

DRUGS (5)
  1. OSELTAMIVIR [Suspect]
     Dosage: ORAL
  2. SALICYLATES [Suspect]
  3. IBUPROFEN [Suspect]
     Dosage: ORAL
     Route: 048
  4. TOPIRAMATE [Suspect]
     Dosage: ORAL
     Route: 048
  5. ACETAMINOPHEN [Suspect]
     Dosage: ORAL
     Route: 048

REACTIONS (1)
  - DEATH [None]
